FAERS Safety Report 5361316-8 (Version None)
Quarter: 2007Q2

REPORT INFORMATION
  Report Type: 
  Country: None (occurrence: None)
  Receive Date: 20070614
  Receipt Date: 20070606
  Transmission Date: 20071010
  Serious: Yes (Other)
  Sender: FDA-Public Use
  Company Number: 028-20785-07060338

PATIENT
  Age: 48 Year
  Sex: Female

DRUGS (2)
  1. THALOMID [Suspect]
     Indication: MULTIPLE MYELOMA
     Dosage: 100 MG, DAILY, ORAL
     Route: 048
     Dates: start: 20070601
  2. DEXAMETHASONE TAB [Concomitant]

REACTIONS (1)
  - BLOOD HUMAN CHORIONIC GONADOTROPIN INCREASED [None]
